FAERS Safety Report 6150646-8 (Version None)
Quarter: 2009Q2

REPORT INFORMATION
  Report Type: 
  Country: None (occurrence: None)
  Receive Date: 20090408
  Receipt Date: 20090408
  Transmission Date: 20091009
  Serious: Yes (Life-Threatening, Hospitalization, Other)
  Sender: FDA-Public Use
  Company Number: None

PATIENT
  Age: 54 Year
  Sex: Female
  Weight: 77.1115 kg

DRUGS (1)
  1. AVELOX [Suspect]
     Indication: THROAT IRRITATION
     Dosage: 1 TABLET FIRST/ONLY DOSE
     Dates: start: 20090203, end: 20090203

REACTIONS (5)
  - CONFUSIONAL STATE [None]
  - DYSPHEMIA [None]
  - GAIT DISTURBANCE [None]
  - HEART RATE INCREASED [None]
  - NAUSEA [None]
